FAERS Safety Report 10881127 (Version 1)
Quarter: 2015Q1

REPORT INFORMATION
  Report Type: Spontaneous
  Country: GB (occurrence: None)
  Receive Date: 20150226
  Receipt Date: 20150226
  Transmission Date: 20150721
  Serious: Yes (Hospitalization, Other)
  Sender: FDA-Public Use
  Company Number: 2014-20948

PATIENT
  Age: 71 Year
  Sex: Male
  Weight: 70 kg

DRUGS (4)
  1. 5-FU (FLUOROURACIL) [Concomitant]
     Active Substance: FLUOROURACIL
  2. IRINOTECAN [Concomitant]
     Active Substance: IRINOTECAN
  3. EYLEA [Suspect]
     Active Substance: AFLIBERCEPT
     Indication: GASTROINTESTINAL CARCINOMA
     Dosage: 1/1 CYCLICAL, INTRAVENOUS
     Route: 042
  4. FOLINIC ACID [Concomitant]
     Active Substance: LEUCOVORIN

REACTIONS (6)
  - Feeling hot [None]
  - Hyperthermia [None]
  - Hypertension [None]
  - Seizure [None]
  - Stupor [None]
  - Malaise [None]

NARRATIVE: CASE EVENT DATE: 20141127
